FAERS Safety Report 11250356 (Version 1)
Quarter: 2015Q3

REPORT INFORMATION
  Report Type: Spontaneous
  Country: US (occurrence: US)
  Receive Date: 20150708
  Receipt Date: 20150708
  Transmission Date: 20151125
  Serious: No
  Sender: FDA-Public Use
  Company Number: US-ELI_LILLY_AND_COMPANY-US201009004668

PATIENT
  Age: 48 Year
  Sex: Female

DRUGS (4)
  1. CLONAZEPAM. [Concomitant]
     Active Substance: CLONAZEPAM
     Dosage: UNK, UNKNOWN
     Route: 065
  2. LAMICTAL [Concomitant]
     Active Substance: LAMOTRIGINE
     Dosage: UNK, UNKNOWN
     Route: 065
  3. SYMBYAX [Suspect]
     Active Substance: FLUOXETINE HYDROCHLORIDE\OLANZAPINE
     Dosage: 0.48 (12/25) MG, UNKNOWN
     Route: 065
     Dates: start: 201003
  4. LITHIUM. [Concomitant]
     Active Substance: LITHIUM
     Dosage: UNK, UNKNOWN
     Route: 065

REACTIONS (2)
  - Indifference [Unknown]
  - Therapeutic response decreased [Unknown]

NARRATIVE: CASE EVENT DATE: 201007
